FAERS Safety Report 4961715-X (Version None)
Quarter: 2006Q2

REPORT INFORMATION
  Report Type: 
  Country: None (occurrence: None)
  Receive Date: 20060404
  Receipt Date: 20060320
  Transmission Date: 20061013
  Serious: Yes (Death, Hospitalization, Other)
  Sender: FDA-Public Use
  Company Number: PHBS2006US04772

PATIENT
  Age: 20 Year
  Sex: Male

DRUGS (21)
  1. CYCLOSPORINE [Suspect]
     Indication: STEM CELL TRANSPLANT
     Dosage: 3 MG/KG/D
     Route: 042
  2. PENICILLIN VK [Concomitant]
     Dosage: 250 MG, BID
     Route: 048
  3. SIROLIMUS [Suspect]
     Indication: STEM CELL TRANSPLANT
     Dosage: 7 MG/D
     Route: 048
  4. SIROLIMUS [Suspect]
     Dosage: 5 MG/D
     Route: 048
  5. MYCOPHENOLATE MOFETIL [Suspect]
     Indication: STEM CELL TRANSPLANT
     Dosage: 1 G, BID
     Route: 048
  6. MYCOPHENOLATE MOFETIL [Suspect]
     Dosage: 500 MG/D
     Route: 048
  7. OXYBUTYNIN [Concomitant]
     Dosage: 5 MG, TID
  8. PANTOPRAZOLE [Concomitant]
     Dosage: 40 MG/D
  9. MORPHINE [Concomitant]
  10. CYCLOSPORINE [Suspect]
     Dosage: 300 MG, BID
     Route: 048
  11. METHOTREXATE [Concomitant]
     Indication: STEM CELL TRANSPLANT
     Dosage: 15 MG/M2
     Route: 042
  12. METHOTREXATE [Concomitant]
     Dosage: 10 MG/M2
     Route: 042
  13. CAMPATH [Concomitant]
     Indication: STEM CELL TRANSPLANT
     Dosage: 20 MG/D
     Route: 042
  14. BUSULFAN [Concomitant]
     Indication: STEM CELL TRANSPLANT
  15. CYTARABINE [Concomitant]
     Indication: STEM CELL TRANSPLANT
  16. CYCLOPHOSPHAMIDE [Concomitant]
     Indication: STEM CELL TRANSPLANT
  17. ITRACONAZOLE [Suspect]
     Indication: PROPHYLAXIS
     Dosage: 200 MG, BID
     Route: 048
  18. TACROLIMUS [Suspect]
     Indication: STEM CELL TRANSPLANT
     Dosage: 3 MG, BID
     Route: 048
  19. RANITIDINE [Concomitant]
     Dosage: 150 MG, BID
     Route: 048
  20. PENTAMIDINE [Concomitant]
     Dosage: 300 MG, QMO
  21. VALGANCICLOVIR [Concomitant]
     Dosage: 900 MG, QW2
     Route: 048

REACTIONS (49)
  - ABDOMINAL PAIN [None]
  - ADENOVIRAL HAEMORRHAGIC CYSTITIS [None]
  - ADENOVIRUS INFECTION [None]
  - ASPARTATE AMINOTRANSFERASE INCREASED [None]
  - BK VIRUS INFECTION [None]
  - BLADDER DISORDER [None]
  - BLOOD BILIRUBIN INCREASED [None]
  - BLOOD CREATININE INCREASED [None]
  - BRONCHOPULMONARY ASPERGILLOSIS [None]
  - CARDIAC FAILURE [None]
  - CARDIOMEGALY [None]
  - CD4 LYMPHOCYTES DECREASED [None]
  - CD8 LYMPHOCYTES DECREASED [None]
  - CLOSTRIDIUM COLITIS [None]
  - DYSPNOEA [None]
  - EJECTION FRACTION DECREASED [None]
  - ENTEROBACTER BACTERAEMIA [None]
  - FOLLICULITIS [None]
  - GASTRITIS [None]
  - GINGIVAL HYPERPLASIA [None]
  - HAEMATURIA [None]
  - HAEMOGLOBIN DECREASED [None]
  - HYDRONEPHROSIS [None]
  - LARGE INTESTINAL ULCER [None]
  - LIVER FUNCTION TEST ABNORMAL [None]
  - MENTAL DISORDER [None]
  - MOUTH HAEMORRHAGE [None]
  - MULTI-ORGAN FAILURE [None]
  - OESOPHAGEAL ULCER [None]
  - OESOPHAGITIS [None]
  - ORAL MUCOSAL PETECHIAE [None]
  - PANCYTOPENIA [None]
  - PERICARDIAL EFFUSION [None]
  - PLATELET COUNT DECREASED [None]
  - PLEURAL EFFUSION [None]
  - PULMONARY CONGESTION [None]
  - PYURIA [None]
  - RED BLOOD CELL SCHISTOCYTES PRESENT [None]
  - RENAL VESSEL DISORDER [None]
  - STAPHYLOCOCCAL BACTERAEMIA [None]
  - T-LYMPHOCYTE COUNT DECREASED [None]
  - THROMBOTIC THROMBOCYTOPENIC PURPURA [None]
  - URETERITIS [None]
  - URINARY TRACT DISORDER [None]
  - VENOOCCLUSIVE DISEASE [None]
  - VENTRICULAR HYPOKINESIA [None]
  - VIRUS URINE TEST POSITIVE [None]
  - VOMITING [None]
  - WHITE BLOOD CELL COUNT DECREASED [None]
